FAERS Safety Report 4352501-2 (Version None)
Quarter: 2004Q2

REPORT INFORMATION
  Report Type: 
  Country: None (occurrence: None)
  Receive Date: 20040409
  Receipt Date: 20040223
  Transmission Date: 20050107
  Serious: No
  Sender: FDA-Public Use
  Company Number: PHEH2004US00909

PATIENT
  Age: 55 Year
  Sex: Female
  Weight: 77.1 kg

DRUGS (10)
  1. ELIDEL [Suspect]
     Indication: DRY SKIN
     Dosage: TOPICAL
     Route: 061
     Dates: start: 20040114, end: 20040114
  2. ASPIRIN [Concomitant]
  3. LIPITOR [Concomitant]
  4. ACIPHEX [Concomitant]
  5. METOPROLOL [Concomitant]
  6. ACCUPRIL [Concomitant]
  7. CELEXA [Concomitant]
  8. GEMFIBROZIL [Concomitant]
  9. MULTIVITAMINS (RETINOL, PANTHENOL) [Concomitant]
  10. DOXYCYCLINE [Concomitant]

REACTIONS (5)
  - APPLICATION SITE BURNING [None]
  - APPLICATION SITE DRYNESS [None]
  - APPLICATION SITE ERYTHEMA [None]
  - APPLICATION SITE PRURITUS [None]
  - APPLICATION SITE WARMTH [None]
